FAERS Safety Report 5968367-0 (Version None)
Quarter: 2008Q4

REPORT INFORMATION
  Report Type: 
  Country: None (occurrence: None)
  Receive Date: 20081126
  Receipt Date: 20081124
  Transmission Date: 20090506
  Serious: Yes (Death)
  Sender: FDA-Public Use
  Company Number: US-CELGENEUS-163-21880-08110137

PATIENT
  Sex: Female

DRUGS (2)
  1. REVLIMID [Suspect]
     Indication: MYELODYSPLASTIC SYNDROME
     Route: 048
     Dates: start: 20081001, end: 20081103
  2. REVLIMID [Suspect]
     Route: 048
     Dates: start: 20070711, end: 20080701

REACTIONS (2)
  - AORTIC STENOSIS [None]
  - CARDIAC FAILURE CONGESTIVE [None]
